FAERS Safety Report 4472605-3 (Version None)
Quarter: 2004Q4

REPORT INFORMATION
  Report Type: 
  Country: None (occurrence: None)
  Receive Date: 20041008
  Receipt Date: 20040917
  Transmission Date: 20050328
  Serious: Yes (Death)
  Sender: FDA-Public Use
  Company Number: EWC040940693

PATIENT
  Age: 70 Year
  Sex: Male

DRUGS (5)
  1. ZYPREXA [Suspect]
     Indication: ACUTE PSYCHOSIS
     Dosage: 10 MG/1 IM
     Route: 030
     Dates: start: 20040720, end: 20040720
  2. SOLIAN (AMISULPRIDE) [Concomitant]
  3. NIPOLEPT (ZOTEPINE) [Concomitant]
  4. ANTIHYPERTENSIVE [Concomitant]
  5. FERRUM (FERROUS FUMARATE) [Concomitant]

REACTIONS (1)
  - AORTIC ANEURYSM RUPTURE [None]
